FAERS Safety Report 6434201-8 (Version None)
Quarter: 2009Q4

REPORT INFORMATION
  Report Type: 
  Country: None (occurrence: None)
  Receive Date: 20091110
  Receipt Date: 20090122
  Transmission Date: 20100525
  Serious: No
  Sender: FDA-Public Use
  Company Number: US-ASTRAZENECA-2009UW18416

PATIENT
  Sex: Female

DRUGS (2)
  1. PRILOSEC OTC [Suspect]
     Indication: DYSPEPSIA
     Dosage: 1 TABLET, 1 /DAY FOR 52 DAYS
     Route: 048
     Dates: start: 20081201, end: 20090122
  2. PRILOSEC OTC [Suspect]
     Indication: GASTRITIS
     Dosage: 1 TABLET, 1 /DAY FOR 52 DAYS
     Route: 048
     Dates: start: 20081201, end: 20090122

REACTIONS (2)
  - ALOPECIA [None]
  - INCORRECT DRUG ADMINISTRATION DURATION [None]
